FAERS Safety Report 13017408 (Version 1)
Quarter: 2016Q4

REPORT INFORMATION
  Report Type: Spontaneous
  Country: US (occurrence: US)
  Receive Date: 20161210
  Receipt Date: 20161210
  Transmission Date: 20170207
  Serious: Yes (Disabling)
  Sender: FDA-Public Use
  Company Number: None

PATIENT
  Age: 50 Year
  Sex: Male
  Weight: 90 kg

DRUGS (3)
  1. LISINOPRIL. [Suspect]
     Active Substance: LISINOPRIL
     Indication: HYPERTENSION
     Dosage: ?          QUANTITY:1 TABLET(S);?
     Route: 048
     Dates: start: 20160825, end: 20161207
  2. FAMOTIDINE. [Concomitant]
     Active Substance: FAMOTIDINE
  3. WELLBUTEROL [Concomitant]

REACTIONS (3)
  - Headache [None]
  - Muscle disorder [None]
  - Arthritis [None]

NARRATIVE: CASE EVENT DATE: 20161201
